FAERS Safety Report 8283750-9 (Version None)
Quarter: 2012Q2

REPORT INFORMATION
  Report Type: 
  Country: None (occurrence: None)
  Receive Date: 20120413
  Receipt Date: 20120110
  Transmission Date: 20120825
  Serious: No
  Sender: FDA-Public Use
  Company Number: US-ASTRAZENECA-2012SE01830

PATIENT
  Age: 49 Year
  Sex: Female
  Weight: 129.3 kg

DRUGS (3)
  1. NEXIUM [Suspect]
     Indication: GASTROOESOPHAGEAL REFLUX DISEASE
     Route: 048
  2. HYPERCHLOROTHIAZIDE [Concomitant]
     Indication: HYPERTENSION
  3. SYMBASTATIN [Concomitant]
     Indication: BLOOD CHOLESTEROL INCREASED

REACTIONS (3)
  - DYSPEPSIA [None]
  - DRUG DOSE OMISSION [None]
  - CONDITION AGGRAVATED [None]
